FAERS Safety Report 13896150 (Version 1)
Quarter: 2017Q3

REPORT INFORMATION
  Report Type: Spontaneous
  Country: US (occurrence: None)
  Receive Date: 20170816
  Receipt Date: 20170816
  Transmission Date: 20171127
  Serious: Yes (Other)
  Sender: FDA-Public Use
  Company Number: None

PATIENT
  Age: 95 Year
  Sex: Female
  Weight: 60.78 kg

DRUGS (15)
  1. VITAMIN B12 [Concomitant]
     Active Substance: CYANOCOBALAMIN
  2. CIPROFLOXACIN HCL-GENERIC FOR CIPRO 250MG [Suspect]
     Active Substance: CIPROFLOXACIN HYDROCHLORIDE
     Indication: URINARY TRACT INFECTION
     Route: 048
     Dates: start: 20170331, end: 20170406
  3. SENOKOT [Concomitant]
     Active Substance: SENNOSIDES
  4. TRANXENE T-TAB [Concomitant]
     Active Substance: CLORAZEPATE DIPOTASSIUM
  5. COREG [Concomitant]
     Active Substance: CARVEDILOL
  6. ROLAIDS [Concomitant]
     Active Substance: CALCIUM CARBONATE\MAGNESIUM HYDROXIDE
  7. NORVASC [Concomitant]
     Active Substance: AMLODIPINE BESYLATE
  8. PEPCID [Concomitant]
     Active Substance: FAMOTIDINE
  9. VITAMIN ESSENTIALS 1 A DAY [Concomitant]
  10. VITAMIN D [Concomitant]
     Active Substance: CHOLECALCIFEROL
  11. CHOLINE [Concomitant]
     Active Substance: CHOLINE
  12. VITAMIN B2 [Concomitant]
     Active Substance: RIBOFLAVIN
  13. TYLENOL [Concomitant]
     Active Substance: ACETAMINOPHEN
  14. LUTEIN [Concomitant]
     Active Substance: LUTEIN
  15. STOOL SOFTENER (DOCUSATE) [Concomitant]
     Active Substance: DOCUSATE

REACTIONS (10)
  - Myalgia [None]
  - Intentional product use issue [None]
  - Arthralgia [None]
  - Musculoskeletal pain [None]
  - Pain in extremity [None]
  - Musculoskeletal stiffness [None]
  - Therapy cessation [None]
  - Condition aggravated [None]
  - Bone pain [None]
  - Arrhythmia [None]
